FAERS Safety Report 8612972-X (Version None)
Quarter: 2012Q3

REPORT INFORMATION
  Report Type: 
  Country: None (occurrence: None)
  Receive Date: 20120822
  Receipt Date: 20120723
  Transmission Date: 20120928
  Serious: Yes (Other)
  Sender: FDA-Public Use
  Company Number: US-MERCK-1208USA004255

PATIENT

DRUGS (2)
  1. TEMODAR [Suspect]
     Indication: BRAIN NEOPLASM MALIGNANT
     Dosage: 100 MG, 21 IN 28 DAYS
     Route: 048
     Dates: start: 20110707
  2. THALOMID [Concomitant]
     Indication: BRAIN NEOPLASM MALIGNANT
     Dosage: UNK

REACTIONS (2)
  - NERVOUSNESS [None]
  - TREATMENT NONCOMPLIANCE [None]
